FAERS Safety Report 7043711-4 (Version None)
Quarter: 2010Q4

REPORT INFORMATION
  Report Type: 
  Country: None (occurrence: None)
  Receive Date: 20101013
  Receipt Date: 20100930
  Transmission Date: 20110411
  Serious: Yes (Other)
  Sender: FDA-Public Use
  Company Number: DE-WATSON-2010-13220

PATIENT
  Age: 5 Year
  Sex: Male

DRUGS (3)
  1. PREDNISONE (WATSON LABORATORIES) [Suspect]
     Indication: JUVENILE ARTHRITIS
     Dosage: UNK
  2. METHOTREXATE [Suspect]
     Indication: JUVENILE ARTHRITIS
     Dosage: UNK
  3. ETANERCEPT [Suspect]
     Indication: JUVENILE ARTHRITIS
     Dosage: UNK

REACTIONS (1)
  - HODGKIN'S DISEASE [None]
